FAERS Safety Report 5956977-6 (Version None)
Quarter: 2008Q4

REPORT INFORMATION
  Report Type: 
  Country: None (occurrence: None)
  Receive Date: 20081031
  Receipt Date: 20080816
  Transmission Date: 20090506
  Serious: No
  Sender: FDA-Public Use
  Company Number: 2008PV036477

PATIENT
  Age: 58 Year
  Sex: Female

DRUGS (8)
  1. SYMLIN [Suspect]
     Indication: TYPE 2 DIABETES MELLITUS
     Dosage: 45 MCG;TID;SC; 30 MCG;TID;SC; 15 MCG;TID;SC
     Route: 058
     Dates: start: 20080801, end: 20080801
  2. SYMLIN [Suspect]
     Indication: TYPE 2 DIABETES MELLITUS
     Dosage: 45 MCG;TID;SC; 30 MCG;TID;SC; 15 MCG;TID;SC
     Route: 058
     Dates: start: 20080812, end: 20080801
  3. SYMLIN [Suspect]
     Indication: TYPE 2 DIABETES MELLITUS
     Dosage: 45 MCG;TID;SC; 30 MCG;TID;SC; 15 MCG;TID;SC
     Route: 058
     Dates: start: 20080801
  4. SYMLIN [Suspect]
  5. LANTUS [Concomitant]
  6. NOVOLOG [Concomitant]
  7. METFORMIN HCL [Concomitant]
  8. BYETTA [Concomitant]

REACTIONS (1)
  - BLOOD GLUCOSE INCREASED [None]
